FAERS Safety Report 13051357 (Version 1)
Quarter: 2016Q4

REPORT INFORMATION
  Report Type: Spontaneous
  Country: US (occurrence: US)
  Receive Date: 20161221
  Receipt Date: 20161221
  Transmission Date: 20170207
  Serious: No
  Sender: FDA-Public Use
  Company Number: US-TEIKOKU PHARMA USA-TPU2016-00839

PATIENT
  Sex: Female
  Weight: 72.64 kg

DRUGS (3)
  1. NEURONTIN [Concomitant]
     Active Substance: GABAPENTIN
     Indication: NERVE INJURY
     Dosage: 1 TABLET IN THE MORNING AND 1 TABLET AT NIGHT
  2. LIDOCAINE PATCH [Suspect]
     Active Substance: LIDOCAINE
     Indication: TORTICOLLIS
     Dosage: APPLIED ON THE BACK BETWEEN THE SHOULDER BLADES IN THE MORNING. ON FOR 12 HOURS OFF FOR 12 HOURS
     Route: 061
     Dates: start: 2002
  3. BOTOX [Concomitant]
     Active Substance: ONABOTULINUMTOXINA
     Indication: MUSCLE SPASMS
     Dosage: 30 INJECTIONS
     Dates: start: 2002

REACTIONS (1)
  - Scar [Not Recovered/Not Resolved]
